FAERS Safety Report 4684838-1 (Version None)
Quarter: 2005Q2

REPORT INFORMATION
  Report Type: 
  Country: None (occurrence: None)
  Receive Date: 20050531
  Receipt Date: 20041129
  Transmission Date: 20051028
  Serious: Yes (Other)
  Sender: FDA-Public Use
  Company Number: USA041184837

PATIENT
  Age: 9 Year
  Sex: Male

DRUGS (3)
  1. ZYPREXA [Suspect]
     Indication: BIPOLAR DISORDER
     Dosage: 5 MG
     Dates: start: 20040901
  2. DEPAKOTE [Concomitant]
  3. CLONIDINE [Concomitant]

REACTIONS (8)
  - ABDOMINAL PAIN UPPER [None]
  - CHEST PAIN [None]
  - INSOMNIA [None]
  - NAUSEA [None]
  - PSYCHOMOTOR HYPERACTIVITY [None]
  - SUICIDAL IDEATION [None]
  - SUICIDE ATTEMPT [None]
  - VOMITING [None]
